FAERS Safety Report 25029008 (Version 4)
Quarter: 2025Q1

REPORT INFORMATION
  Report Type: Report from Study
  Country: CA (occurrence: CA)
  Receive Date: 20250303
  Receipt Date: 20250329
  Transmission Date: 20250408
  Serious: Yes (Hospitalization, Other)
  Sender: ABBVIE
  Company Number: CA-ABBVIE-6100484

PATIENT
  Age: 75 Year
  Sex: Female

DRUGS (5)
  1. VYALEV [Suspect]
     Active Substance: FOSCARBIDOPA\FOSLEVODOPA
     Indication: Product used for unknown indication
     Route: 058
     Dates: start: 20250116
  2. CITALOPRAM [Concomitant]
     Active Substance: CITALOPRAM
     Indication: Product used for unknown indication
  3. CLONAZEPAM [Concomitant]
     Active Substance: CLONAZEPAM
     Indication: Product used for unknown indication
  4. GABAPENTIN [Concomitant]
     Active Substance: GABAPENTIN
     Indication: Product used for unknown indication
  5. CARBIDOPA AND LEVODOPA [Concomitant]
     Active Substance: CARBIDOPA\LEVODOPA
     Indication: Product used for unknown indication

REACTIONS (19)
  - Upper limb fracture [Unknown]
  - On and off phenomenon [Unknown]
  - Infusion site discharge [Unknown]
  - Device use issue [Unknown]
  - Bradykinesia [Unknown]
  - Musculoskeletal stiffness [Unknown]
  - Dyskinesia [Unknown]
  - Drug ineffective [Unknown]
  - Freezing phenomenon [Unknown]
  - Catheter site haemorrhage [Unknown]
  - Catheter site bruise [Unknown]
  - Catheter site nodule [Unknown]
  - Mobility decreased [Unknown]
  - Anxiety [Unknown]
  - Fall [Unknown]
  - Therapeutic product effect decreased [Unknown]
  - Pain [Unknown]
  - Confusional state [Unknown]
  - Cardiac disorder [Unknown]

NARRATIVE: CASE EVENT DATE: 20250101
